FAERS Safety Report 11108043 (Version 2)
Quarter: 2015Q3

REPORT INFORMATION
  Report Type: Spontaneous
  Country: US (occurrence: US)
  Receive Date: 20150512
  Receipt Date: 20150807
  Transmission Date: 20151125
  Serious: No
  Sender: FDA-Public Use
  Company Number: US-GLAXOSMITHKLINE-US2015040579

PATIENT
  Age: 67 Year
  Sex: Female

DRUGS (1)
  1. ALLI [Suspect]
     Active Substance: ORLISTAT
     Indication: WEIGHT LOSS DIET
     Dosage: UNK
     Dates: start: 20150218

REACTIONS (6)
  - Diarrhoea [Unknown]
  - Product quality issue [Unknown]
  - Steatorrhoea [Recovered/Resolved]
  - Constipation [Unknown]
  - Drug ineffective [Unknown]
  - Ill-defined disorder [Recovered/Resolved]
